FAERS Safety Report 6628884-7 (Version None)
Quarter: 2010Q1

REPORT INFORMATION
  Report Type: 
  Country: None (occurrence: None)
  Receive Date: 20100311
  Receipt Date: 20100304
  Transmission Date: 20100710
  Serious: Yes (Other)
  Sender: FDA-Public Use
  Company Number: US-AMGEN-QUU393284

PATIENT
  Sex: Male

DRUGS (7)
  1. EPOGEN [Suspect]
     Indication: RENAL FAILURE CHRONIC
     Route: 058
     Dates: start: 20090101
  2. AMLODIPINE [Concomitant]
  3. CALCIUM CARBONATE [Concomitant]
  4. NEPHROCAPS [Concomitant]
  5. PRAVASTATIN [Concomitant]
  6. ZANTAC [Concomitant]
  7. RENAGEL [Concomitant]

REACTIONS (2)
  - APLASIA PURE RED CELL [None]
  - THERAPEUTIC RESPONSE DECREASED [None]
